FAERS Safety Report 7281243-9 (Version None)
Quarter: 2011Q1

REPORT INFORMATION
  Report Type: 
  Country: None (occurrence: None)
  Receive Date: 20110208
  Receipt Date: 20110131
  Transmission Date: 20110831
  Serious: Yes (Death)
  Sender: FDA-Public Use
  Company Number: CHPA2011US02041

PATIENT
  Age: 37 Year
  Sex: Female

DRUGS (11)
  1. ZOLPIDEM [Suspect]
  2. GABAPENTIN [Suspect]
     Dosage: UNK
  3. OXYCODONE [Suspect]
  4. ALPRAZOLAM [Suspect]
  5. ACETAMINOPHEN [Suspect]
     Route: 048
  6. DIPHENHYDRAMINE [Suspect]
  7. ANTIDEPRESSANTS [Suspect]
  8. ETHANOL [Suspect]
  9. NAPROXEN [Suspect]
  10. ZIPRASIDONE [Suspect]
  11. AMLODIPINE [Suspect]

REACTIONS (1)
  - COMPLETED SUICIDE [None]
